FAERS Safety Report 22160268 (Version 1)
Quarter: 2023Q1

REPORT INFORMATION
  Report Type: Spontaneous
  Country: CN (occurrence: CN)
  Receive Date: 20230331
  Receipt Date: 20230331
  Transmission Date: 20230418
  Serious: Yes (Hospitalization)
  Sender: FDA-Public Use
  Company Number: CN-Merck Healthcare KGaA-9391162

PATIENT
  Age: 58 Year
  Sex: Female
  Weight: 56 kg

DRUGS (18)
  1. ERBITUX [Suspect]
     Active Substance: CETUXIMAB
     Indication: Colon cancer
     Dosage: 700 MG, UNKNOWN
     Route: 041
     Dates: start: 20230201, end: 20230201
  2. ERBITUX [Suspect]
     Active Substance: CETUXIMAB
     Dosage: 700 MG, UNKNOWN
     Route: 041
     Dates: start: 20230219, end: 20230219
  3. OXALIPLATIN [Suspect]
     Active Substance: OXALIPLATIN
     Indication: Colon cancer
     Dosage: 130 MG, UNK
     Route: 041
     Dates: start: 20230201, end: 20230201
  4. OXALIPLATIN [Suspect]
     Active Substance: OXALIPLATIN
     Dosage: 130 MG, UNK
     Route: 041
     Dates: start: 20230219, end: 20230219
  5. FLUOROURACIL [Suspect]
     Active Substance: FLUOROURACIL
     Indication: Colon cancer
     Dosage: 0.6 G, UNKNOWN
     Route: 042
     Dates: start: 20230201, end: 20230201
  6. FLUOROURACIL [Suspect]
     Active Substance: FLUOROURACIL
     Dosage: 3.75 G, UNKNOWN
     Route: 042
     Dates: start: 20230201, end: 20230201
  7. FLUOROURACIL [Suspect]
     Active Substance: FLUOROURACIL
     Dosage: 0.6 G, UNKNOWN
     Route: 042
     Dates: start: 20230219, end: 20230219
  8. FLUOROURACIL [Suspect]
     Active Substance: FLUOROURACIL
     Dosage: 3.75 G, UNKNOWN
     Route: 042
     Dates: start: 20230219, end: 20230219
  9. LEUCOVORIN CALCIUM [Concomitant]
     Active Substance: LEUCOVORIN CALCIUM
     Indication: Colon cancer
     Dosage: 300 MG, UNKNOWN
     Route: 041
     Dates: start: 20230201, end: 20230201
  10. LEUCOVORIN CALCIUM [Concomitant]
     Active Substance: LEUCOVORIN CALCIUM
     Dosage: 300 MG, UNKNOWN
     Route: 041
     Dates: start: 20230219, end: 20230219
  11. SODIUM CHLORIDE [Concomitant]
     Active Substance: SODIUM CHLORIDE
     Indication: Medication dilution
     Dosage: 150 ML, DAILY
     Route: 041
     Dates: start: 20230201, end: 20230201
  12. SODIUM CHLORIDE [Concomitant]
     Active Substance: SODIUM CHLORIDE
     Dosage: 150 ML, DAILY
     Route: 041
     Dates: start: 20230219, end: 20230219
  13. DEXTROSE [Concomitant]
     Active Substance: DEXTROSE
     Indication: Medication dilution
     Dosage: 250 ML, DAILY
     Route: 041
     Dates: start: 20230201, end: 20230201
  14. DEXTROSE [Concomitant]
     Active Substance: DEXTROSE
     Dosage: 20 ML, DAILY
     Route: 042
     Dates: start: 20230201, end: 20230201
  15. DEXTROSE [Concomitant]
     Active Substance: DEXTROSE
     Dosage: 230 ML, DAILY
     Route: 041
     Dates: start: 20230201, end: 20230201
  16. DEXTROSE [Concomitant]
     Active Substance: DEXTROSE
     Dosage: 250 ML, DAILY
     Route: 041
     Dates: start: 20230219, end: 20230219
  17. DEXTROSE [Concomitant]
     Active Substance: DEXTROSE
     Dosage: 20 ML, DAILY
     Route: 042
     Dates: start: 20230219, end: 20230219
  18. DEXTROSE [Concomitant]
     Active Substance: DEXTROSE
     Dosage: 230 ML, DAILY
     Route: 041
     Dates: start: 20230219, end: 20230219

REACTIONS (1)
  - Myelosuppression [Recovering/Resolving]

NARRATIVE: CASE EVENT DATE: 20230306
